FAERS Safety Report 20195258 (Version 1)
Quarter: 2021Q4

REPORT INFORMATION
  Report Type: Spontaneous
  Country: FR (occurrence: FR)
  Receive Date: 20211216
  Receipt Date: 20211216
  Transmission Date: 20220303
  Serious: Yes (Congenital Anomaly, Other)
  Sender: FDA-Public Use
  Company Number: FR-ABBVIE-21K-056-4197485-00

PATIENT
  Sex: Male

DRUGS (2)
  1. VALPROATE SODIUM [Suspect]
     Active Substance: VALPROATE SODIUM
     Indication: Maternal exposure timing unspecified
     Route: 064
     Dates: start: 20051024, end: 20060701
  2. FOLIC ACID [Concomitant]
     Active Substance: FOLIC ACID
     Indication: Maternal exposure timing unspecified

REACTIONS (46)
  - Hypotonia neonatal [Not Recovered/Not Resolved]
  - Developmental delay [Unknown]
  - Dacryostenosis acquired [Unknown]
  - Dysmorphism [Not Recovered/Not Resolved]
  - Hypospadias [Unknown]
  - Foot deformity [Not Recovered/Not Resolved]
  - Cryptorchism [Not Recovered/Not Resolved]
  - Scoliosis [Not Recovered/Not Resolved]
  - Torticollis [Not Recovered/Not Resolved]
  - Growth retardation [Not Recovered/Not Resolved]
  - Poor sucking reflex [Unknown]
  - Strabismus [Unknown]
  - Stereotypy [Unknown]
  - Agitation [Unknown]
  - Laryngeal dyspnoea [Unknown]
  - Bronchopulmonary disease [Unknown]
  - Otitis media [Unknown]
  - Autism spectrum disorder [Unknown]
  - Ear disorder [Unknown]
  - Nasal disorder [Unknown]
  - Pharyngeal disorder [Unknown]
  - Gastrooesophageal reflux disease [Unknown]
  - Pasteurella infection [Unknown]
  - Sleep disorder [Unknown]
  - Hypermetropia [Unknown]
  - Laryngitis [Unknown]
  - Frustration tolerance decreased [Unknown]
  - Aggression [Unknown]
  - Anxiety [Unknown]
  - Eating disorder [Unknown]
  - Regurgitation [Unknown]
  - Astigmatism [Unknown]
  - Speech disorder developmental [Unknown]
  - Behaviour disorder [Unknown]
  - Cough [Unknown]
  - Vomiting [Unknown]
  - Pain [Unknown]
  - Crying [Unknown]
  - Sleep disorder [Unknown]
  - Astigmatism [Unknown]
  - Conjunctivitis [Unknown]
  - Respiratory disorder [Unknown]
  - Respiratory distress [Unknown]
  - Middle insomnia [Unknown]
  - Intestinal transit time abnormal [Unknown]
  - Foetal exposure during pregnancy [Unknown]

NARRATIVE: CASE EVENT DATE: 20100101
